FAERS Safety Report 9024510 (Version 1)
Quarter: 2013Q1

REPORT INFORMATION
  Report Type: Spontaneous
  Country: US (occurrence: None)
  Receive Date: 20130122
  Receipt Date: 20130122
  Transmission Date: 20140127
  Serious: Yes (Other)
  Sender: FDA-Public Use
  Company Number: None

PATIENT
  Age: 45 Year
  Sex: Female
  Weight: 90.72 kg

DRUGS (2)
  1. METHYLPREDNISOLONE ACETATE [Suspect]
     Dosage: 80MG PRN PERINEURAL
     Route: 053
     Dates: start: 20120717, end: 20120926
  2. METHYLPREDNISOLONE ACETATE [Suspect]
     Indication: INTERVERTEBRAL DISC DEGENERATION
     Dosage: 80MG PRN PERINEURAL
     Route: 053
     Dates: start: 20120717, end: 20120926

REACTIONS (3)
  - Neck pain [None]
  - Back pain [None]
  - Musculoskeletal pain [None]
